FAERS Safety Report 19200019 (Version 1)
Quarter: 2021Q2

REPORT INFORMATION
  Report Type: Spontaneous
  Country: GB (occurrence: GB)
  Receive Date: 20210430
  Receipt Date: 20210430
  Transmission Date: 20210717
  Serious: Yes (Other)
  Sender: FDA-Public Use
  Company Number: GB-GLAXOSMITHKLINE-GB2021091709

PATIENT
  Age: 19 Year
  Sex: Female
  Weight: 80 kg

DRUGS (2)
  1. ATOVAQUONE. [Suspect]
     Active Substance: ATOVAQUONE
     Indication: MALARIA PROPHYLAXIS
     Dosage: 1 DF, QD, (1 TABLET EVERY EVENING)
     Route: 048
     Dates: start: 20210417, end: 20210420
  2. PROGUANIL HYDROCHLORIDE. [Suspect]
     Active Substance: PROGUANIL HYDROCHLORIDE
     Indication: MALARIA PROPHYLAXIS
     Dosage: 1 DF, QD, (1 TABLET EVERY EVENING)
     Route: 048
     Dates: start: 20210417, end: 20210420

REACTIONS (6)
  - Emotional disorder [Recovering/Resolving]
  - Insomnia [Recovering/Resolving]
  - Anxiety [Recovering/Resolving]
  - Crying [Recovering/Resolving]
  - Palpitations [Recovering/Resolving]
  - Panic attack [Recovering/Resolving]

NARRATIVE: CASE EVENT DATE: 20210417
